FAERS Safety Report 5175047-0 (Version None)
Quarter: 2006Q4

REPORT INFORMATION
  Report Type: 
  Country: None (occurrence: None)
  Receive Date: 20061206
  Receipt Date: 20061130
  Transmission Date: 20070319
  Serious: Yes (Life-Threatening)
  Sender: FDA-Public Use
  Company Number: 230411

PATIENT
  Age: 33 Year
  Sex: Female

DRUGS (9)
  1. RITUXAN [Suspect]
     Indication: SYSTEMIC LUPUS ERYTHEMATOSUS
     Dosage: 1000 MG, QD, INTRAVENOUS
     Route: 042
     Dates: start: 20051202, end: 20051216
  2. PREDNISOLONE [Suspect]
     Indication: SYSTEMIC LUPUS ERYTHEMATOSUS
     Dates: start: 20050901
  3. CYCLOSPORINE [Suspect]
     Indication: SYSTEMIC LUPUS ERYTHEMATOSUS
     Dosage: 150 MG
     Dates: start: 20060310
  4. CYCLOPHOSPHAMIDE [Concomitant]
  5. ERYTHROMYCIN [Concomitant]
  6. GAMMA GLOBULIN (GLOBULIN, IMMUNE) [Concomitant]
  7. ISONIAZID [Concomitant]
  8. RIFAMPICIN [Concomitant]
  9. GANCICLOVIR [Concomitant]

REACTIONS (6)
  - CONVULSION [None]
  - CYTOMEGALOVIRUS ANTIGEN POSITIVE [None]
  - LUNG NEOPLASM [None]
  - NERVOUS SYSTEM DISORDER [None]
  - PNEUMONIA LEGIONELLA [None]
  - SYSTEMIC LUPUS ERYTHEMATOSUS [None]
